FAERS Safety Report 13907072 (Version 3)
Quarter: 2017Q4

REPORT INFORMATION
  Report Type: Report from Study
  Country: TR (occurrence: TR)
  Receive Date: 20170825
  Receipt Date: 20171102
  Transmission Date: 20180320
  Serious: Yes (Life-Threatening, Other)
  Sender: FDA-Public Use
  Company Number: TR-GILEAD-2017-0289776

PATIENT
  Age: 57 Year
  Sex: Female

DRUGS (1)
  1. LEDIPASVIR/SOFOSBUVIR [Suspect]
     Active Substance: LEDIPASVIR\SOFOSBUVIR
     Indication: CHRONIC HEPATITIS C
     Dosage: 1 DF, QD
     Route: 048
     Dates: start: 20170216, end: 20170521

REACTIONS (8)
  - Discomfort [Recovered/Resolved]
  - Mental disorder [Recovered/Resolved]
  - Restlessness [Recovered/Resolved]
  - Depression [Recovered/Resolved]
  - Asthenia [Recovered/Resolved]
  - Hot flush [Recovered/Resolved]
  - Insomnia [Recovered/Resolved]
  - Headache [Recovered/Resolved]
